FAERS Safety Report 4439110-1 (Version None)
Quarter: 2004Q3

REPORT INFORMATION
  Report Type: 
  Country: None (occurrence: None)
  Receive Date: 20040901
  Receipt Date: 20040825
  Transmission Date: 20050211
  Serious: Yes (Other)
  Sender: FDA-Public Use
  Company Number: PHBS2004JP11284

PATIENT
  Age: 77 Year
  Sex: 0

DRUGS (6)
  1. TEGRETOL [Suspect]
     Dosage: 400 MG/DAY
     Route: 065
  2. FOIPAN [Concomitant]
     Route: 065
  3. SELBEX [Concomitant]
     Route: 065
  4. MELLARIL [Concomitant]
  5. PANTOSIN [Concomitant]
  6. GASTER [Concomitant]

REACTIONS (2)
  - CONVULSION [None]
  - DRUG LEVEL DECREASED [None]
